FAERS Safety Report 17969413 (Version 1)
Quarter: 2020Q3

REPORT INFORMATION
  Report Type: Spontaneous
  Country: FR (occurrence: FR)
  Receive Date: 20200701
  Receipt Date: 20200701
  Transmission Date: 20201103
  Serious: Yes (Hospitalization)
  Sender: FDA-Public Use
  Company Number: FR-PFIZER INC-2020253035

PATIENT
  Age: 64 Year
  Sex: Male

DRUGS (1)
  1. AMLOR [Suspect]
     Active Substance: AMLODIPINE BESYLATE
     Indication: HYPERTENSION
     Dosage: 1 DF, 1X/DAY
     Route: 048
     Dates: start: 20131017, end: 20191209

REACTIONS (2)
  - Gingival hypertrophy [Not Recovered/Not Resolved]
  - Periodontitis [Recovering/Resolving]

NARRATIVE: CASE EVENT DATE: 2017
